FAERS Safety Report 25670651 (Version 1)
Quarter: 2025Q3

REPORT INFORMATION
  Report Type: Spontaneous
  Country: US (occurrence: None)
  Receive Date: 20250812
  Receipt Date: 20250812
  Transmission Date: 20251021
  Serious: Yes (Hospitalization)
  Sender: FDA-CTU
  Company Number: None

PATIENT
  Age: 43 Year
  Sex: Female
  Weight: 64.4 kg

DRUGS (1)
  1. PONATINIB [Suspect]
     Active Substance: PONATINIB
     Dates: end: 20250520

REACTIONS (8)
  - Abdominal pain [None]
  - Nausea [None]
  - Vomiting [None]
  - Weight decreased [None]
  - White blood cell count decreased [None]
  - Immunosuppression [None]
  - Flank pain [None]
  - Gastric ulcer [None]

NARRATIVE: CASE EVENT DATE: 20250521
